FAERS Safety Report 19749413 (Version 1)
Quarter: 2021Q3

REPORT INFORMATION
  Report Type: Spontaneous
  Country: TR (occurrence: TR)
  Receive Date: 20210826
  Receipt Date: 20210826
  Transmission Date: 20211014
  Serious: Yes (Death, Hospitalization)
  Sender: FDA-Public Use
  Company Number: TR-STRIDES ARCOLAB LIMITED-2021SP026801

PATIENT
  Age: 30 Year
  Sex: Male

DRUGS (5)
  1. PREDNISOLONE. [Suspect]
     Active Substance: PREDNISOLONE
     Indication: RENAL TRANSPLANT
     Dosage: 20 MILLIGRAM PER DAY
     Route: 065
     Dates: start: 2020
  2. MYCOPHENOLATE MOFETIL. [Suspect]
     Active Substance: MYCOPHENOLATE MOFETIL
     Indication: RENAL TRANSPLANT
     Dosage: 2000 MILLIGRAM PER DAY
     Route: 065
     Dates: start: 2020
  3. TACROLIMUS. [Suspect]
     Active Substance: TACROLIMUS
     Indication: RENAL TRANSPLANT
     Dosage: 8 MILLIGRAM PER DAY
     Route: 065
     Dates: start: 2020, end: 2020
  4. MYCOPHENOLATE MOFETIL. [Suspect]
     Active Substance: MYCOPHENOLATE MOFETIL
     Dosage: 1000 MILLIGRAM PER DAY
     Route: 065
     Dates: start: 2020
  5. AMLODIPINE [Concomitant]
     Active Substance: AMLODIPINE BESYLATE
     Indication: ESSENTIAL HYPERTENSION
     Dosage: 10 MILLIGRAM, PER DAY
     Route: 065

REACTIONS (9)
  - Multiple organ dysfunction syndrome [Fatal]
  - COVID-19 [Fatal]
  - Haemorrhagic disorder [Fatal]
  - Cardiac arrest [Fatal]
  - Sepsis [Fatal]
  - Transplant rejection [Fatal]
  - Acute kidney injury [Fatal]
  - Respiratory distress [Fatal]
  - Haemolytic uraemic syndrome [Fatal]

NARRATIVE: CASE EVENT DATE: 2020
